FAERS Safety Report 12853065 (Version 1)
Quarter: 2016Q4

REPORT INFORMATION
  Report Type: Spontaneous
  Country: US (occurrence: US)
  Receive Date: 20161017
  Receipt Date: 20161017
  Transmission Date: 20170207
  Serious: No
  Sender: FDA-Public Use
  Company Number: US-JAZZ-2016-US-014152

PATIENT
  Age: 45 Year
  Sex: Female

DRUGS (31)
  1. PREDNISONE. [Concomitant]
     Active Substance: PREDNISONE
  2. REQUIP [Concomitant]
     Active Substance: ROPINIROLE HYDROCHLORIDE
  3. ACETYL L-CARNITINE [Concomitant]
     Active Substance: ACETYLCARNITINE
  4. DIFLUCAN [Concomitant]
     Active Substance: FLUCONAZOLE
  5. VITAMIN B12 [Concomitant]
     Active Substance: CYANOCOBALAMIN
  6. FLUTICASONE PROPIONATE. [Concomitant]
     Active Substance: FLUTICASONE PROPIONATE
  7. MAGNESIUM [Concomitant]
     Active Substance: MAGNESIUM
  8. MAXALT [Concomitant]
     Active Substance: RIZATRIPTAN BENZOATE
  9. ZONEGRAN [Concomitant]
     Active Substance: ZONISAMIDE
  10. ASPIRIN. [Concomitant]
     Active Substance: ASPIRIN
  11. ADDERALL [Concomitant]
     Active Substance: AMPHETAMINE ASPARTATE\AMPHETAMINE SULFATE\DEXTROAMPHETAMINE SACCHARATE\DEXTROAMPHETAMINE SULFATE
  12. AMANTADINE [Concomitant]
     Active Substance: AMANTADINE
  13. AMITRIPTYLINE HCL [Concomitant]
     Active Substance: AMITRIPTYLINE
  14. KLONOPIN [Concomitant]
     Active Substance: CLONAZEPAM
  15. OXYCODONE HYDROCHLORIDE. [Concomitant]
     Active Substance: OXYCODONE HYDROCHLORIDE
  16. PHENYLALANINE [Concomitant]
     Active Substance: PHENYLALANINE
  17. XYREM [Suspect]
     Active Substance: SODIUM OXYBATE
     Indication: NARCOLEPSY
     Dosage: 2.25 G, BID
     Route: 048
     Dates: start: 201607
  18. BACLOFEN. [Concomitant]
     Active Substance: BACLOFEN
  19. DICLOFENAC SODIUM. [Concomitant]
     Active Substance: DICLOFENAC SODIUM
  20. GABA [Concomitant]
     Active Substance: .GAMMA.-AMINOBUTYRIC ACID
  21. LEVAQUIN [Concomitant]
     Active Substance: LEVOFLOXACIN
  22. ALBUTEROL HFA [Concomitant]
     Active Substance: ALBUTEROL SULFATE
  23. AMBIEN [Concomitant]
     Active Substance: ZOLPIDEM TARTRATE
  24. CALCIUM [Concomitant]
     Active Substance: CALCIUM
  25. PYRIDOSTIGMINE BROMIDE. [Concomitant]
     Active Substance: PYRIDOSTIGMINE BROMIDE
  26. THEOPHYLLINE [Concomitant]
     Active Substance: THEOPHYLLINE ANHYDROUS
  27. TRIMETHOBENZAMIDE [Concomitant]
     Active Substance: TRIMETHOBENZAMIDE
  28. VITAMIN D3 [Concomitant]
     Active Substance: CHOLECALCIFEROL
  29. ZYRTEC-D [Concomitant]
     Active Substance: CETIRIZINE HYDROCHLORIDE\PSEUDOEPHEDRINE HYDROCHLORIDE
  30. HYDROCODONE/ACETAMINOPHEN [Concomitant]
     Active Substance: ACETAMINOPHEN\HYDROCODONE
  31. POTASSIUM CL [Concomitant]
     Active Substance: POTASSIUM CHLORIDE

REACTIONS (2)
  - Headache [Not Recovered/Not Resolved]
  - Burning sensation [Unknown]

NARRATIVE: CASE EVENT DATE: 201607
